FAERS Safety Report 8172884-5 (Version None)
Quarter: 2012Q1

REPORT INFORMATION
  Report Type: 
  Country: None (occurrence: None)
  Receive Date: 20120229
  Receipt Date: 20120229
  Transmission Date: 20120608
  Serious: Yes (Hospitalization)
  Sender: FDA-Public Use
  Company Number: None

PATIENT
  Age: 60 Year
  Sex: Female
  Weight: 65.77 kg

DRUGS (2)
  1. LIPITOR [Suspect]
     Indication: CHOLESTEROSIS
     Dosage: 1 PILL
     Route: 048
     Dates: start: 20050810, end: 20050830
  2. CRESTOR [Concomitant]
     Indication: CHOLESTEROSIS
     Dosage: 1 PILL
     Route: 048
     Dates: start: 20050903, end: 20050915

REACTIONS (5)
  - BACK PAIN [None]
  - MYALGIA [None]
  - ABDOMINAL PAIN UPPER [None]
  - INFLUENZA LIKE ILLNESS [None]
  - TYPE 1 DIABETES MELLITUS [None]
